FAERS Safety Report 15415625 (Version 2)
Quarter: 2018Q4

REPORT INFORMATION
  Report Type: Report from Study
  Country: US (occurrence: US)
  Receive Date: 20180922
  Receipt Date: 20181102
  Transmission Date: 20190204
  Serious: No
  Sender: FDA-Public Use
  Company Number: PHEH2018US039299

PATIENT
  Sex: Female

DRUGS (1)
  1. COSENTYX [Suspect]
     Active Substance: SECUKINUMAB
     Indication: ANKYLOSING SPONDYLITIS
     Dosage: 150 MG, QW
     Route: 058

REACTIONS (7)
  - Nasal congestion [Unknown]
  - Cough [Unknown]
  - Back pain [Unknown]
  - Pyrexia [Unknown]
  - Dry throat [Unknown]
  - Throat irritation [Unknown]
  - Muscle spasms [Unknown]
